FAERS Safety Report 15627341 (Version 1)
Quarter: 2018Q4

REPORT INFORMATION
  Report Type: Report from Study
  Country: ES (occurrence: ES)
  Receive Date: 20181116
  Receipt Date: 20181116
  Transmission Date: 20190205
  Serious: Yes (Other)
  Sender: FDA-Public Use
  Company Number: ES-EMD SERONO-9052481

PATIENT

DRUGS (2)
  1. KEYTRUDA [Concomitant]
     Active Substance: PEMBROLIZUMAB
     Indication: NEUROENDOCRINE CARCINOMA OF THE SKIN
  2. BAVENCIO [Suspect]
     Active Substance: AVELUMAB
     Indication: NEUROENDOCRINE CARCINOMA OF THE SKIN

REACTIONS (1)
  - Adverse drug reaction [Unknown]
